FAERS Safety Report 18555791 (Version 2)
Quarter: 2020Q4

REPORT INFORMATION
  Report Type: Spontaneous
  Country: TW (occurrence: TW)
  Receive Date: 20201127
  Receipt Date: 20201203
  Transmission Date: 20210114
  Serious: Yes (Other)
  Sender: FDA-Public Use
  Company Number: TW-009507513-2011TWN016238

PATIENT
  Age: 29 Year
  Sex: Female
  Weight: 69 kg

DRUGS (9)
  1. DAPTOMYCIN. [Suspect]
     Active Substance: DAPTOMYCIN
     Indication: ABDOMINAL INFECTION
     Dosage: 500 MILLIGRAM, QDPMPC
     Route: 041
     Dates: start: 20200527, end: 20200603
  2. MEPEM [Suspect]
     Active Substance: MEROPENEM
     Indication: DEVICE RELATED INFECTION
  3. MEPEM [Suspect]
     Active Substance: MEROPENEM
     Indication: PNEUMONIA
  4. TYGACIL [Suspect]
     Active Substance: TIGECYCLINE
     Indication: PNEUMONIA
  5. TYGACIL [Suspect]
     Active Substance: TIGECYCLINE
     Indication: SEPSIS
     Dosage: 50 MG/VIAL, 1 VIAL, Q12H
     Route: 041
     Dates: start: 20200522, end: 20200603
  6. DAPTOMYCIN. [Suspect]
     Active Substance: DAPTOMYCIN
     Indication: DEVICE RELATED INFECTION
  7. MEPEM [Suspect]
     Active Substance: MEROPENEM
     Indication: ABDOMINAL INFECTION
     Dosage: 0.25 G/VIAL, 2 VIALS, QDPM
     Route: 041
     Dates: start: 20200507, end: 20200603
  8. DAPTOMYCIN. [Suspect]
     Active Substance: DAPTOMYCIN
     Indication: PNEUMONIA
  9. TYGACIL [Suspect]
     Active Substance: TIGECYCLINE
     Indication: DEVICE RELATED INFECTION

REACTIONS (1)
  - Drug eruption [Recovered/Resolved]

NARRATIVE: CASE EVENT DATE: 20200603
